FAERS Safety Report 8433652-X (Version None)
Quarter: 2012Q2

REPORT INFORMATION
  Report Type: 
  Country: None (occurrence: None)
  Receive Date: 20120613
  Receipt Date: 20120605
  Transmission Date: 20120825
  Serious: Yes (Death, Hospitalization)
  Sender: FDA-Public Use
  Company Number: CA-PERRIGO-12CA005004

PATIENT
  Age: 86 Year
  Sex: Male

DRUGS (2)
  1. IMIQUIMOD [Suspect]
     Indication: ACTINIC KERATOSIS
     Dosage: UNK
     Route: 061
  2. IMIQUIMOD [Suspect]
     Indication: CHEILITIS

REACTIONS (9)
  - SEPSIS [None]
  - LOCAL REACTION [None]
  - MULTI-ORGAN FAILURE [None]
  - SCAB [None]
  - SKIN EXFOLIATION [None]
  - DERMATITIS BULLOUS [None]
  - SKIN HAEMORRHAGE [None]
  - BLISTER [None]
  - PEMPHIGUS [None]
